FAERS Safety Report 5049804-5 (Version None)
Quarter: 2006Q3

REPORT INFORMATION
  Report Type: 
  Country: None (occurrence: None)
  Receive Date: 20060712
  Receipt Date: 20060703
  Transmission Date: 20061208
  Serious: Yes (Hospitalization)
  Sender: FDA-Public Use
  Company Number: AU-MERCK-0607AUS00013

PATIENT
  Age: 62 Year
  Sex: Female

DRUGS (14)
  1. FOLIC ACID [Concomitant]
     Route: 065
     Dates: start: 20020101
  2. VITAMINS (UNSPECIFIED) [Concomitant]
     Route: 065
     Dates: start: 20040101
  3. FOSAMAX [Suspect]
     Route: 065
     Dates: start: 20030101
  4. SERTRALINE HYDROCHLORIDE [Concomitant]
     Route: 065
     Dates: start: 20000101
  5. DEXAMETHASONE [Concomitant]
     Route: 065
     Dates: start: 20010101
  6. LEFLUNOMIDE [Concomitant]
     Route: 065
     Dates: start: 20020101
  7. WARFARIN [Concomitant]
     Route: 065
     Dates: start: 20030101
  8. PANTOPRAZOLE SODIUM [Concomitant]
     Route: 065
     Dates: start: 20020101
  9. ATORVASTATIN CALCIUM [Concomitant]
     Route: 065
     Dates: start: 20020101
  10. OXYBUTYNIN CHLORIDE [Concomitant]
     Route: 065
     Dates: start: 20040101
  11. GLUCOSAMINE SULFATE [Concomitant]
     Route: 065
     Dates: start: 20010101
  12. IRON (UNSPECIFIED) [Concomitant]
     Route: 065
     Dates: start: 20040101
  13. METHOTREXATE [Concomitant]
     Route: 065
     Dates: start: 20030101, end: 20040701
  14. CELECOXIB [Concomitant]
     Route: 065
     Dates: start: 20000101, end: 20030101

REACTIONS (9)
  - CARPAL TUNNEL SYNDROME [None]
  - DEEP VEIN THROMBOSIS [None]
  - INTERTRIGO [None]
  - INTERVERTEBRAL DISC PROTRUSION [None]
  - LUMBAR SPINAL STENOSIS [None]
  - NEUROPATHY PERIPHERAL [None]
  - OSTEOARTHRITIS [None]
  - PNEUMONIA [None]
  - THROMBOSIS [None]
